FAERS Safety Report 21938079 (Version 3)
Quarter: 2023Q1

REPORT INFORMATION
  Report Type: Spontaneous
  Country: US (occurrence: US)
  Receive Date: 20230201
  Receipt Date: 20230310
  Transmission Date: 20230417
  Serious: No
  Sender: FDA-Public Use
  Company Number: US-PFIZER INC-202300044093

PATIENT
  Age: 79 Year
  Sex: Male
  Weight: 81.633 kg

DRUGS (2)
  1. NARDIL [Suspect]
     Active Substance: PHENELZINE SULFATE
     Indication: Major depression
     Dosage: 15 MG, 4X/DAY (TOOK 2 15MG TODAY AND THEN TOOK 2 MORE)
  2. NARDIL [Suspect]
     Active Substance: PHENELZINE SULFATE
     Indication: Anxiety

REACTIONS (3)
  - Dry mouth [Unknown]
  - Salivary hypersecretion [Unknown]
  - Off label use [Unknown]
